FAERS Safety Report 11056231 (Version 1)
Quarter: 2015Q2

REPORT INFORMATION
  Report Type: Spontaneous
  Country: IT (occurrence: IT)
  Receive Date: 20150422
  Receipt Date: 20150422
  Transmission Date: 20150821
  Serious: Yes (Hospitalization)
  Sender: FDA-Public Use
  Company Number: IT-BAYER-2015-141844

PATIENT
  Age: 67 Year
  Sex: Female

DRUGS (5)
  1. OKI [Suspect]
     Active Substance: KETOPROFEN LYSINE
     Dosage: 80 MG, DAILY DOSE
     Route: 048
     Dates: start: 20130503, end: 20130509
  2. LASIX [Concomitant]
     Active Substance: FUROSEMIDE
     Dosage: 25 MG, DAILY DOSE
     Route: 048
  3. CARDIOASPIRIN [Suspect]
     Active Substance: ASPIRIN
     Dosage: 100 MG, DAILY DOSE
     Route: 048
     Dates: start: 20101129, end: 20130509
  4. TRIATEC [Concomitant]
     Active Substance: RAMIPRIL
     Dosage: 2.5 MG, DAILY DOSE
     Route: 048
  5. LANSOPRAZOLE. [Concomitant]
     Active Substance: LANSOPRAZOLE
     Dosage: 15 MG, DAILY DOSE
     Route: 048

REACTIONS (2)
  - Hemiparesis [Recovered/Resolved with Sequelae]
  - Haemorrhagic stroke [Recovered/Resolved with Sequelae]

NARRATIVE: CASE EVENT DATE: 20130509
